FAERS Safety Report 24979946 (Version 1)
Quarter: 2025Q1

REPORT INFORMATION
  Report Type: Spontaneous
  Country: US (occurrence: US)
  Receive Date: 20250218
  Receipt Date: 20250218
  Transmission Date: 20250408
  Serious: Yes (Other)
  Sender: SCIEGEN PHARMACEUTICALS INC
  Company Number: US-SCIEGENP-2025SCLIT00025

PATIENT

DRUGS (3)
  1. LACOSAMIDE [Suspect]
     Active Substance: LACOSAMIDE
     Indication: Neonatal seizure
     Route: 065
  2. LACOSAMIDE [Suspect]
     Active Substance: LACOSAMIDE
     Indication: Hypoxic ischaemic encephalopathy neonatal
  3. LACOSAMIDE [Suspect]
     Active Substance: LACOSAMIDE
     Indication: Product use issue

REACTIONS (2)
  - Neonatal sinus bradycardia [Recovered/Resolved]
  - Off label use [Unknown]
